FAERS Safety Report 11652116 (Version 2)
Quarter: 2016Q1

REPORT INFORMATION
  Report Type: Spontaneous
  Country: US (occurrence: US)
  Receive Date: 20151022
  Receipt Date: 20160217
  Transmission Date: 20160525
  Serious: Yes (Other)
  Sender: FDA-Public Use
  Company Number: US-PFIZER INC-2015351697

PATIENT
  Age: 63 Year
  Sex: Male
  Weight: 82 kg

DRUGS (1)
  1. VIAGRA [Suspect]
     Active Substance: SILDENAFIL CITRATE
     Indication: ERECTILE DYSFUNCTION
     Dosage: 1 DF, UNK
     Route: 048
     Dates: start: 2015

REACTIONS (3)
  - Intentional product misuse [Not Recovered/Not Resolved]
  - Spontaneous ejaculation [Not Recovered/Not Resolved]
  - Erection increased [Recovered/Resolved]

NARRATIVE: CASE EVENT DATE: 2015
